FAERS Safety Report 6819123-2 (Version None)
Quarter: 2010Q3

REPORT INFORMATION
  Report Type: 
  Country: None (occurrence: None)
  Receive Date: 20100707
  Receipt Date: 20100628
  Transmission Date: 20110219
  Serious: Yes (Hospitalization)
  Sender: FDA-Public Use
  Company Number: FR-JNJFOC-20091107570

PATIENT
  Sex: Female

DRUGS (2)
  1. RISPERDAL [Suspect]
     Indication: PRODUCT USED FOR UNKNOWN INDICATION
     Route: 048
     Dates: start: 20090719, end: 20090826
  2. NORSET [Concomitant]
     Route: 065

REACTIONS (2)
  - BILIARY CIRRHOSIS PRIMARY [None]
  - HEPATIC ENZYME INCREASED [None]
